FAERS Safety Report 7941091-0 (Version None)
Quarter: 2011Q4

REPORT INFORMATION
  Report Type: 
  Country: None (occurrence: None)
  Receive Date: 20111114
  Receipt Date: 20110727
  Transmission Date: 20120403
  Serious: Yes (Hospitalization)
  Sender: FDA-Public Use
  Company Number: 2011S1000505

PATIENT
  Age: 62 Year
  Sex: Male

DRUGS (3)
  1. LINEZOLID [Concomitant]
  2. CUBICIN [Suspect]
     Indication: BACTERAEMIA
  3. ENOXAPARIN [Concomitant]

REACTIONS (1)
  - TYPE IV HYPERSENSITIVITY REACTION [None]
